FAERS Safety Report 13898678 (Version 1)
Quarter: 2017Q3

REPORT INFORMATION
  Report Type: Spontaneous
  Country: US (occurrence: US)
  Receive Date: 20170824
  Receipt Date: 20170824
  Transmission Date: 20171127
  Serious: No
  Sender: FDA-Public Use
  Company Number: US-GLAXOSMITHKLINE-US2017GSK130746

PATIENT
  Sex: Male

DRUGS (2)
  1. AFRIN [Suspect]
     Active Substance: OXYMETAZOLINE
     Indication: UPPER RESPIRATORY TRACT CONGESTION
     Dosage: UNK UNK, Z
  2. FLONASE SENSIMIST ALLERGY RELIEF [Suspect]
     Active Substance: FLUTICASONE FUROATE
     Indication: PRODUCT USED FOR UNKNOWN INDICATION
     Dosage: UNK UNK, QD AT BEDTIME

REACTIONS (4)
  - Circumstance or information capable of leading to medication error [Unknown]
  - Poor quality sleep [Unknown]
  - Headache [Unknown]
  - Upper respiratory tract congestion [Unknown]
